FAERS Safety Report 13179374 (Version 1)
Quarter: 2017Q1

REPORT INFORMATION
  Report Type: Spontaneous
  Country: FR (occurrence: FR)
  Receive Date: 20170202
  Receipt Date: 20170202
  Transmission Date: 20170428
  Serious: Yes (Other)
  Sender: FDA-Public Use
  Company Number: FR-TEVA-733369ROM

PATIENT
  Age: 64 Year
  Sex: Male

DRUGS (9)
  1. DOXORUBICIN TEVA [Suspect]
     Active Substance: DOXORUBICIN
     Dosage: FIRST DAY OF THE FOURTH COURSE OF CHEMOTHERAPY PROTOCOL R-ABVD
     Route: 042
     Dates: start: 20161229, end: 20161229
  2. BLEOMYCINE BELLON 15 MG [Suspect]
     Active Substance: BLEOMYCIN SULFATE
     Dosage: 20 MILLIGRAM DAILY; FIRST DAY OF THE FOURTH COURSE OF CHEMOTHERAPY PROTOCOL R-ABVD
     Route: 042
     Dates: start: 20161229, end: 20161229
  3. DOXORUBICIN TEVA [Suspect]
     Active Substance: DOXORUBICIN
     Indication: LYMPHOMA
     Dosage: FIRST DAY OF THE THIRD COURSE OF CHEMOTHERAPY PROTOCOL R-ABVD
     Route: 042
     Dates: start: 20161117, end: 20161117
  4. BLEOMYCINE BELLON 15 MG [Suspect]
     Active Substance: BLEOMYCIN SULFATE
     Indication: LYMPHOMA
     Dosage: 20 MILLIGRAM DAILY; FIRST DAY OF THE THIRD COURSE OF CHEMOTHERAPY PROTOCOL R-ABVD
     Route: 042
     Dates: start: 20161117, end: 20161117
  5. VELBE [Suspect]
     Active Substance: VINBLASTINE SULFATE
     Indication: LYMPHOMA
     Dosage: 12 MILLIGRAM DAILY; FIRST DAY OF THE THIRD COURSE OF CHEMOTHERAPY PROTOCOL R-ABVD
     Route: 042
     Dates: start: 20161117, end: 20161117
  6. VELBE [Suspect]
     Active Substance: VINBLASTINE SULFATE
     Dosage: 12 MILLIGRAM DAILY; FIRST DAY OF THE FOURTH COURSE OF CHEMOTHERAPY PROTOCOL R-ABVD
     Route: 042
     Dates: start: 20161229, end: 20161229
  7. DACARBAZINE MEDAC [Suspect]
     Active Substance: DACARBAZINE
     Indication: LYMPHOMA
     Dosage: 750 MILLIGRAM DAILY; FIRST DAY OF THE THIRD COURSE OF CHEMOTHERAPY PROTOCOL R-ABVD
     Route: 042
     Dates: start: 20161117, end: 20161117
  8. MABTHERA [Concomitant]
     Active Substance: RITUXIMAB
  9. DACARBAZINE MEDAC [Suspect]
     Active Substance: DACARBAZINE
     Dosage: 750 MILLIGRAM DAILY; FIRST DAY OF THE FOURTH COURSE OF CHEMOTHERAPY PROTOCOL R-ABVD
     Route: 042
     Dates: start: 20161229, end: 20161229

REACTIONS (2)
  - Flagellate dermatitis [Not Recovered/Not Resolved]
  - Pruritus [Recovered/Resolved]

NARRATIVE: CASE EVENT DATE: 20161229
